FAERS Safety Report 18437310 (Version 17)
Quarter: 2024Q2

REPORT INFORMATION
  Report Type: Report from Study
  Country: US (occurrence: US)
  Receive Date: 20201028
  Receipt Date: 20240604
  Transmission Date: 20240716
  Serious: Yes (Hospitalization, Other)
  Sender: FDA-Public Use
  Company Number: US-SHIRE-US202007995

PATIENT
  Sex: Female

DRUGS (4)
  1. HUMAN IMMUNOGLOBULIN G [Suspect]
     Active Substance: HUMAN IMMUNOGLOBULIN G
     Indication: Immunodeficiency common variable
     Dosage: UNK
     Route: 058
  2. HUMAN IMMUNOGLOBULIN G [Suspect]
     Active Substance: HUMAN IMMUNOGLOBULIN G
     Indication: Primary immunodeficiency syndrome
  3. COVID-19 VACCINE NOS [Suspect]
     Active Substance: COVID-19 VACCINE
     Indication: COVID-19 immunisation
     Dosage: UNK
     Route: 065
  4. CALCIUM [Concomitant]
     Active Substance: CALCIUM
     Dosage: UNK UNK, QD
     Route: 065

REACTIONS (38)
  - Aspergillus infection [Unknown]
  - Pneumonia [Unknown]
  - Intervertebral disc protrusion [Unknown]
  - Osteoporosis [Unknown]
  - Degenerative bone disease [Unknown]
  - Cataract [Unknown]
  - Asthma [Recovering/Resolving]
  - Asthenia [Unknown]
  - Asphyxia [Unknown]
  - Metapneumovirus infection [Unknown]
  - Illness [Unknown]
  - Spinal compression fracture [Unknown]
  - Infection [Unknown]
  - Bronchitis [Unknown]
  - Cough [Unknown]
  - Dyspnoea [Unknown]
  - Back disorder [Unknown]
  - Osteoarthritis [Unknown]
  - Insurance issue [Unknown]
  - Abdominal discomfort [Unknown]
  - Sinus disorder [Unknown]
  - Nasopharyngitis [Unknown]
  - Dry skin [Unknown]
  - Mobility decreased [Unknown]
  - Memory impairment [Unknown]
  - B-lymphocyte abnormalities [Unknown]
  - Gastrointestinal disorder [Unknown]
  - Breast cyst [Recovered/Resolved]
  - Chronic obstructive pulmonary disease [Recovering/Resolving]
  - Skin striae [Unknown]
  - Melanocytic naevus [Recovered/Resolved]
  - Irritable bowel syndrome [Unknown]
  - Arthritis [Unknown]
  - Fibromyalgia [Unknown]
  - Constipation [Unknown]
  - Pain [Unknown]
  - Dizziness [Unknown]
  - Diarrhoea [Unknown]

NARRATIVE: CASE EVENT DATE: 20130101
